FAERS Safety Report 14036060 (Version 1)
Quarter: 2017Q4

REPORT INFORMATION
  Report Type: Spontaneous
  Country: US (occurrence: US)
  Receive Date: 20171003
  Receipt Date: 20171003
  Transmission Date: 20180321
  Serious: No
  Sender: FDA-Public Use
  Company Number: US-ROCHE-1922270

PATIENT
  Sex: Female

DRUGS (2)
  1. ZELBORAF [Suspect]
     Active Substance: VEMURAFENIB
     Indication: MALIGNANT MELANOMA
     Route: 048
     Dates: start: 20170419
  2. ZELBORAF [Suspect]
     Active Substance: VEMURAFENIB
     Route: 048
     Dates: start: 20170414

REACTIONS (5)
  - Stomatitis [Unknown]
  - Headache [Unknown]
  - Neuropathy peripheral [Unknown]
  - Photosensitivity reaction [Unknown]
  - Arthralgia [Unknown]
